FAERS Safety Report 9604372 (Version 1)
Quarter: 2013Q4

REPORT INFORMATION
  Report Type: Spontaneous
  Country: MX (occurrence: MX)
  Receive Date: 20131008
  Receipt Date: 20131008
  Transmission Date: 20140711
  Serious: Yes (Hospitalization, Other)
  Sender: FDA-Public Use
  Company Number: PHHY2013MX111609

PATIENT
  Sex: Male
  Weight: 1.8 kg

DRUGS (4)
  1. TRILEPTAL [Suspect]
     Indication: EPILEPSY
     Dosage: MATERNAL DOSE: 200 MG IN EVERY 12 HOURS
     Route: 064
     Dates: start: 2011, end: 201301
  2. TEGRETOL [Suspect]
     Indication: EPILEPSY
     Dosage: MATERNAL DOSE: 01 DF IN EVERY 12 HOURS
     Route: 064
     Dates: end: 20110823
  3. ASPIRIN PROTECT [Concomitant]
     Dosage: MATERNAL DOSE: 01 DF DAILY
  4. DAILY MULTIVITAMIN [Concomitant]
     Dosage: MATERNAL DOSE: 01 DF DAILY

REACTIONS (3)
  - Dyspnoea [Recovered/Resolved]
  - Low birth weight baby [Recovered/Resolved]
  - Foetal exposure during pregnancy [Unknown]
